FAERS Safety Report 7115212-6 (Version None)
Quarter: 2010Q4

REPORT INFORMATION
  Report Type: 
  Country: None (occurrence: None)
  Receive Date: 20101122
  Receipt Date: 20101109
  Transmission Date: 20110411
  Serious: Yes (Other)
  Sender: FDA-Public Use
  Company Number: PHHY2010GB76106

PATIENT
  Age: 33 Year
  Sex: Female

DRUGS (4)
  1. OXYTOCIN [Suspect]
     Indication: POSTPARTUM HAEMORRHAGE
     Dosage: 5 IU
  2. OXYTOCIN [Suspect]
     Dosage: 10 IU/HOUR FOR 4 HOURS
  3. SYNTOMETRINE [Suspect]
  4. DICLOFENAC SODIUM [Concomitant]
     Dosage: 100 MG
     Route: 054

REACTIONS (11)
  - BRADYCARDIA [None]
  - BUNDLE BRANCH BLOCK LEFT [None]
  - CHEST PAIN [None]
  - ELECTROCARDIOGRAM T WAVE INVERSION [None]
  - HYPERTENSION [None]
  - INCORRECT ROUTE OF DRUG ADMINISTRATION [None]
  - MYOCARDIAL ISCHAEMIA [None]
  - PALLOR [None]
  - PROTEINURIA [None]
  - SINUS BRADYCARDIA [None]
  - TROPONIN I INCREASED [None]
